FAERS Safety Report 6418233-1 (Version None)
Quarter: 2009Q4

REPORT INFORMATION
  Report Type: 
  Country: None (occurrence: None)
  Receive Date: 20091028
  Receipt Date: 20091020
  Transmission Date: 20100525
  Serious: Yes (Other)
  Sender: FDA-Public Use
  Company Number: PL-GENENTECH-291937

PATIENT
  Age: 29 Year
  Sex: Female

DRUGS (4)
  1. HERCEPTIN [Suspect]
     Indication: BREAST CANCER
     Dosage: 4 MG/KG, UNK
     Route: 065
     Dates: start: 20060101, end: 20060915
  2. CAPECITABINE [Suspect]
     Indication: BREAST CANCER
     Dosage: 2500 MG/M2, BID
     Route: 065
     Dates: start: 20070119, end: 20080801
  3. PACLITAXEL [Suspect]
     Indication: BREAST CANCER
     Dosage: 175 MG/M2, Q21D
     Route: 065
     Dates: start: 20060210, end: 20060602
  4. LAPATINIB [Suspect]
     Indication: BREAST CANCER
     Dosage: UNK
     Route: 065
     Dates: start: 20060101, end: 20061201

REACTIONS (6)
  - DISEASE PROGRESSION [None]
  - GRANULOCYTOPENIA [None]
  - METABOLIC DISORDER [None]
  - PALMAR-PLANTAR ERYTHRODYSAESTHESIA SYNDROME [None]
  - SALPINGO-OOPHORITIS [None]
  - TREATMENT FAILURE [None]
